FAERS Safety Report 12764073 (Version 1)
Quarter: 2016Q3

REPORT INFORMATION
  Report Type: Spontaneous
  Country: BD (occurrence: BD)
  Receive Date: 20160920
  Receipt Date: 20160920
  Transmission Date: 20161109
  Serious: Yes (Life-Threatening)
  Sender: FDA-Public Use
  Company Number: BD-MYLANLABS-2016M1039934

PATIENT

DRUGS (10)
  1. CLOPIDOGREL [Suspect]
     Active Substance: CLOPIDOGREL BISULFATE
     Dosage: 75MG DAILY
     Route: 065
  2. ASPIRIN                            /00002701/ [Suspect]
     Active Substance: ASPIRIN
     Dosage: AGAIN DOSE REDUCED TO 75MG ONCE DAILY
     Route: 065
  3. PRASUGREL [Suspect]
     Active Substance: PRASUGREL
     Indication: ANTIPLATELET THERAPY
     Dosage: LOADING DOSE: 60MG AND LATER CONTINUED AT 10MG DAILY
     Route: 065
  4. ASPIRIN                            /00002701/ [Suspect]
     Active Substance: ASPIRIN
     Indication: ANTIPLATELET THERAPY
     Dosage: INITIALLY: 300MG LATER AT 75MG TWICE DAILY
     Route: 065
  5. ENOXAPARIN SODIUM. [Suspect]
     Active Substance: ENOXAPARIN SODIUM
     Dosage: 0.3MG/KG
     Route: 042
  6. PRASUGREL [Suspect]
     Active Substance: PRASUGREL
     Dosage: 10MG DAILY
     Route: 065
  7. ASPIRIN                            /00002701/ [Suspect]
     Active Substance: ASPIRIN
     Route: 065
  8. FUROSEMIDE. [Concomitant]
     Active Substance: FUROSEMIDE
     Route: 042
  9. ENOXAPARIN SODIUM. [Suspect]
     Active Substance: ENOXAPARIN SODIUM
     Dosage: DOSE UNKNOWN
     Route: 058
  10. CLOPIDOGREL [Suspect]
     Active Substance: CLOPIDOGREL BISULFATE
     Dosage: INITIALLY AT 600MG, LATER AT 75MG
     Route: 065

REACTIONS (6)
  - Pleural effusion [Recovered/Resolved]
  - Acute pulmonary oedema [Recovered/Resolved]
  - Pericardial haemorrhage [Recovered/Resolved]
  - Pericardial effusion [Recovered/Resolved]
  - Haemothorax [Recovered/Resolved]
  - Cardiac tamponade [Recovered/Resolved]
